FAERS Safety Report 9603529 (Version 2)
Quarter: 2014Q2

REPORT INFORMATION
  Report Type: Spontaneous
  Country: US (occurrence: US)
  Receive Date: 20131007
  Receipt Date: 20140415
  Transmission Date: 20141212
  Serious: No
  Sender: FDA-Public Use
  Company Number: US-PFIZER INC-2013283263

PATIENT
  Age: 74 Year
  Sex: Female

DRUGS (8)
  1. CELEBREX [Suspect]
     Dosage: UNK
  2. CHLOROMYCETIN [Suspect]
     Dosage: UNK
  3. ERYTHROMYCIN [Suspect]
     Dosage: UNK
  4. FLAGYL [Suspect]
     Dosage: UNK
  5. ZITHROMAX [Suspect]
     Dosage: UNK
  6. AMPICILLIN [Suspect]
     Dosage: UNK
  7. TETRACYCLINE HCL [Suspect]
     Dosage: UNK
  8. HYDROCODONE [Suspect]
     Dosage: UNK

REACTIONS (1)
  - Drug hypersensitivity [Unknown]
